FAERS Safety Report 8648993 (Version 2)
Quarter: 2012Q4

REPORT INFORMATION
  Report Type: 
  Country: US (occurrence: US)
  Receive Date: 20120704
  Receipt Date: 20120903
  Transmission Date: 20130627
  Serious: Yes (Other)
  Sender: FDA-Public Use
  Company Number: PHEH2012US012808

PATIENT
  Age: 73 Year
  Sex: Female
  Weight: 22.68 kg

DRUGS (1)
  1. RECLAST [Suspect]
     Indication: OSTEOPOROSIS
     Dosage: 5 mg once yearly
     Route: 042
     Dates: start: 20120627

REACTIONS (10)
  - Musculoskeletal chest pain [Recovering/Resolving]
  - Chest discomfort [Unknown]
  - Dyspnoea [Unknown]
  - Headache [Unknown]
  - Neck pain [Unknown]
  - Poor quality sleep [Not Recovered/Not Resolved]
  - Neutrophil count increased [Unknown]
  - Pain [Unknown]
  - Myalgia [Recovering/Resolving]
  - Influenza like illness [Unknown]
